FAERS Safety Report 6018265-1 (Version None)
Quarter: 2008Q4

REPORT INFORMATION
  Report Type: 
  Country: None (occurrence: None)
  Receive Date: 20081223
  Receipt Date: 20081217
  Transmission Date: 20090506
  Serious: Yes (Hospitalization, Other)
  Sender: FDA-Public Use
  Company Number: US-BRISTOL-MYERS SQUIBB COMPANY-14434575

PATIENT
  Age: 51 Year
  Sex: Male
  Weight: 61 kg

DRUGS (1)
  1. DASATINIB [Suspect]
     Indication: SARCOMA
     Route: 048
     Dates: start: 20081201, end: 20081204

REACTIONS (5)
  - ABDOMINAL DISTENSION [None]
  - HYPOTENSION [None]
  - PYREXIA [None]
  - RENAL FAILURE [None]
  - URINARY RETENTION [None]
